FAERS Safety Report 20444974 (Version 2)
Quarter: 2022Q1

REPORT INFORMATION
  Report Type: Spontaneous
  Country: TR (occurrence: TR)
  Receive Date: 20220208
  Receipt Date: 20220210
  Transmission Date: 20220423
  Serious: Yes (Death, Hospitalization)
  Sender: FDA-Public Use
  Company Number: TR-GILEAD-2022-0568783

PATIENT
  Age: 59 Year
  Sex: Male

DRUGS (15)
  1. BIKTARVY [Suspect]
     Active Substance: BICTEGRAVIR SODIUM\EMTRICITABINE\TENOFOVIR ALAFENAMIDE FUMARATE
     Indication: HIV infection
     Dosage: UNK
     Route: 065
  2. CYCLOPHOSPHAMIDE\DOXORUBICIN\PREDNISONE\RITUXIMAB\VINCRISTINE [Suspect]
     Active Substance: CYCLOPHOSPHAMIDE\DOXORUBICIN\PREDNISONE\RITUXIMAB\VINCRISTINE
     Indication: Non-Hodgkin^s lymphoma
     Dosage: 1 DOSAGE FORM, CYCLICAL; 2 CYCLES
     Route: 065
     Dates: start: 202012
  3. DOXORUBICIN HYDROCHLORIDE [Concomitant]
     Active Substance: DOXORUBICIN HYDROCHLORIDE
  4. FILGRASTIM [Concomitant]
     Active Substance: FILGRASTIM
  5. GRANISETRON HYDROCHLORIDE [Concomitant]
     Active Substance: GRANISETRON HYDROCHLORIDE
  6. LENOGRASTIM [Concomitant]
     Active Substance: LENOGRASTIM
  7. METHYLPREDNISOLONE [Concomitant]
     Active Substance: METHYLPREDNISOLONE
  8. ONDANSETRON [Concomitant]
     Active Substance: ONDANSETRON
  9. PALONOSETRON [Concomitant]
     Active Substance: PALONOSETRON
  10. TROPISETRON [Concomitant]
     Active Substance: TROPISETRON
  11. METFORMIN HYDROCHLORIDE\PIOGLITAZONE HYDROCHLORIDE [Concomitant]
     Active Substance: METFORMIN HYDROCHLORIDE\PIOGLITAZONE HYDROCHLORIDE
  12. SITAGLIPTIN [Concomitant]
     Active Substance: SITAGLIPTIN
  13. INSULIN NOS [Concomitant]
     Active Substance: INSULIN NOS
  14. EMPAGLIFLOZIN [Concomitant]
     Active Substance: EMPAGLIFLOZIN
  15. RAMIPRIL [Concomitant]
     Active Substance: RAMIPRIL

REACTIONS (1)
  - Febrile neutropenia [Fatal]
